FAERS Safety Report 10239357 (Version 1)
Quarter: 2014Q2

REPORT INFORMATION
  Report Type: Spontaneous
  Country: US (occurrence: None)
  Receive Date: 20140613
  Receipt Date: 20140613
  Transmission Date: 20141212
  Serious: Yes (Other)
  Sender: FDA-Public Use
  Company Number: None

PATIENT
  Age: 62 Year
  Sex: Female
  Weight: 146.51 kg

DRUGS (12)
  1. PRADAXA [Suspect]
     Indication: PULMONARY THROMBOSIS
     Route: 048
     Dates: start: 20140429, end: 20140430
  2. LANTUS [Concomitant]
  3. NOVOLOG [Concomitant]
  4. LASIX [Concomitant]
  5. TIMOLOL [Concomitant]
  6. PRAVASTATIN [Concomitant]
  7. LEVOTHYROXINE [Concomitant]
  8. METOPROLOL [Concomitant]
  9. COUMADIN [Concomitant]
  10. MULTIVITAMINS WITH MINERALS [Concomitant]
  11. VITAMIN B12 [Concomitant]
  12. VITAMIN D3 [Concomitant]

REACTIONS (1)
  - Blood urine present [None]
